FAERS Safety Report 18072655 (Version 1)
Quarter: 2020Q3

REPORT INFORMATION
  Report Type: Spontaneous
  Country: US (occurrence: US)
  Receive Date: 20200727
  Receipt Date: 20200727
  Transmission Date: 20201103
  Serious: No
  Sender: FDA-Public Use
  Company Number: US-SA-2020SA186840

PATIENT

DRUGS (1)
  1. DUPIXENT [Suspect]
     Active Substance: DUPILUMAB
     Indication: DERMATITIS ATOPIC
     Dosage: 300 MG, QOW
     Route: 058

REACTIONS (4)
  - Injection site bruising [Unknown]
  - Injection site swelling [Unknown]
  - Injection site erythema [Unknown]
  - Spinal operation [Unknown]

NARRATIVE: CASE EVENT DATE: 2020
